FAERS Safety Report 6603308-4 (Version None)
Quarter: 2010Q1

REPORT INFORMATION
  Report Type: 
  Country: None (occurrence: None)
  Receive Date: 20100226
  Receipt Date: 20090107
  Transmission Date: 20100710
  Serious: No
  Sender: FDA-Public Use
  Company Number: A0762691A

PATIENT
  Sex: Female

DRUGS (4)
  1. VALTREX [Suspect]
     Indication: GENITAL HERPES
     Route: 048
  2. MULTI-VITAMIN [Concomitant]
  3. CALCIUM [Concomitant]
  4. FISH OIL [Concomitant]

REACTIONS (2)
  - ABDOMINAL DISCOMFORT [None]
  - IMPAIRED WORK ABILITY [None]
